FAERS Safety Report 13923942 (Version 1)
Quarter: 2017Q3

REPORT INFORMATION
  Report Type: Spontaneous
  Country: US (occurrence: None)
  Receive Date: 20170830
  Receipt Date: 20170830
  Transmission Date: 20171127
  Serious: Yes (Hospitalization)
  Sender: FDA-Public Use
  Company Number: None

PATIENT
  Age: 40 Year
  Sex: Female

DRUGS (9)
  1. METFORMIN [Concomitant]
     Active Substance: METFORMIN HYDROCHLORIDE
  2. GABAPENTIN. [Concomitant]
     Active Substance: GABAPENTIN
  3. CARAFATE [Concomitant]
     Active Substance: SUCRALFATE
  4. MAGNESIUM [Concomitant]
     Active Substance: MAGNESIUM
  5. MAG OXIDE [Concomitant]
     Active Substance: MAGNESIUM OXIDE
  6. PROPRANOLOL [Concomitant]
     Active Substance: PROPRANOLOL HYDROCHLORIDE
  7. ENOXAPARIN [Concomitant]
     Active Substance: ENOXAPARIN
  8. AMITRIPTYLIN [Concomitant]
     Active Substance: AMITRIPTYLINE
  9. SUTENT [Suspect]
     Active Substance: SUNITINIB MALATE
     Indication: MALIGNANT CONNECTIVE TISSUE NEOPLASM
     Route: 048
     Dates: start: 20170414

REACTIONS (2)
  - Surgery [None]
  - Drug dose omission [None]

NARRATIVE: CASE EVENT DATE: 2017
